FAERS Safety Report 15466648 (Version 2)
Quarter: 2018Q4

REPORT INFORMATION
  Report Type: Spontaneous
  Country: US (occurrence: US)
  Receive Date: 20181005
  Receipt Date: 20181221
  Transmission Date: 20190204
  Serious: No
  Sender: FDA-Public Use
  Company Number: US-LUPIN PHARMACEUTICALS INC.-2018-06157

PATIENT
  Age: 48 Year
  Sex: Female
  Weight: 49.89 kg

DRUGS (1)
  1. DULOXETINE DELAYED-RELEASE CAPSULES 20 MG [Suspect]
     Active Substance: DULOXETINE
     Indication: PAIN
     Dosage: 20 MG, QD
     Route: 048
     Dates: start: 201806

REACTIONS (5)
  - Pain [Recovered/Resolved]
  - Quality of life decreased [Unknown]
  - Drug ineffective [Unknown]
  - Headache [Recovered/Resolved]
  - Vomiting [Recovered/Resolved]
